FAERS Safety Report 10313317 (Version 1)
Quarter: 2014Q3

REPORT INFORMATION
  Report Type: Spontaneous
  Country: CA (occurrence: None)
  Receive Date: 20140716
  Receipt Date: 20140716
  Transmission Date: 20150326
  Serious: Yes (Hospitalization)
  Sender: FDA-Public Use
  Company Number: 2014HAR00002

PATIENT
  Age: 63 Year
  Sex: Male
  Weight: 74 kg

DRUGS (11)
  1. METOPROLOL (METOPROLOL) [Suspect]
     Active Substance: METOPROLOL
     Indication: CORONARY ARTERY DISEASE
     Route: 048
     Dates: end: 20090923
  2. FUROSEMDIE (FUROSEMIDE) [Concomitant]
  3. ACETYLSALICYCLIC ACID (ACETYLSALICYCLIC ACID) [Concomitant]
     Active Substance: ASPIRIN
  4. ATORVASTATIN (ATORVASTATIN) [Concomitant]
     Active Substance: ATORVASTATIN
  5. DOMPERIDONE (DOMPERIDONE) [Concomitant]
     Active Substance: DOMPERIDONE
  6. TERBINAFINE (TERBINAFINE) [Suspect]
     Active Substance: TERBINAFINE
     Indication: ONYCHOMYCOSIS
     Route: 048
     Dates: start: 20090805, end: 20090924
  7. TRANDOLOPRIL (TRANDOLOPRIL) [Concomitant]
  8. CLOPIDOGREL [Concomitant]
     Active Substance: CLOPIDOGREL BISULFATE
  9. POTASSIUM CHLORIDE (POTASSIUM CHLORIDE) [Concomitant]
     Active Substance: POTASSIUM CHLORIDE
  10. CICLOPIROX (CICLOPIROX) [Concomitant]
  11. ACETAMINOPHEN (ACETAMINOPHEN) [Concomitant]
     Active Substance: ACETAMINOPHEN

REACTIONS (6)
  - Drug interaction [None]
  - Sinus bradycardia [None]
  - Confusional state [None]
  - Fall [None]
  - Condition aggravated [None]
  - Dementia Alzheimer^s type [None]

NARRATIVE: CASE EVENT DATE: 20090923
